FAERS Safety Report 19941059 (Version 1)
Quarter: 2021Q4

REPORT INFORMATION
  Report Type: Spontaneous
  Country: FR (occurrence: FR)
  Receive Date: 20211011
  Receipt Date: 20211011
  Transmission Date: 20220303
  Serious: No
  Sender: FDA-Public Use
  Company Number: FR-JAZZ-2021-FR-007559

PATIENT

DRUGS (2)
  1. SUNOSI [Suspect]
     Active Substance: SOLRIAMFETOL
     Indication: Somnolence
     Dosage: UNKNOWN DOSE AND DURATION
  2. XYREM [Concomitant]
     Active Substance: SODIUM OXYBATE

REACTIONS (2)
  - Tachyphylaxis [Unknown]
  - Off label use [Unknown]
